FAERS Safety Report 16827935 (Version 2)
Quarter: 2019Q4

REPORT INFORMATION
  Report Type: Spontaneous
  Country: US (occurrence: US)
  Receive Date: 20190919
  Receipt Date: 20191007
  Transmission Date: 20200122
  Serious: Yes (Other)
  Sender: FDA-Public Use
  Company Number: US-JNJFOC-20190923823

PATIENT
  Age: 78 Year
  Sex: Male

DRUGS (3)
  1. IMBRUVICA [Suspect]
     Active Substance: IBRUTINIB
     Dosage: 420 MG, UNK
     Route: 048
     Dates: end: 20190801
  2. IMBRUVICA [Suspect]
     Active Substance: IBRUTINIB
     Dosage: 420 MG, UNK
     Route: 048
     Dates: start: 20190830
  3. IMBRUVICA [Suspect]
     Active Substance: IBRUTINIB
     Indication: PRODUCT USED FOR UNKNOWN INDICATION
     Dosage: 420 MG, UNK
     Route: 048
     Dates: end: 20190801

REACTIONS (1)
  - Surgery [Unknown]

NARRATIVE: CASE EVENT DATE: 201908
